FAERS Safety Report 8956290 (Version 3)
Quarter: 2013Q1

REPORT INFORMATION
  Report Type: Report from Study
  Country: CZ (occurrence: CZ)
  Receive Date: 20121210
  Receipt Date: 20121221
  Transmission Date: 20140127
  Serious: Yes (Hospitalization)
  Sender: FDA-Public Use
  Company Number: CZ-ASTRAZENECA-2012SE83244

PATIENT
  Age: 25806 Day
  Sex: Male

DRUGS (10)
  1. AZD6140 [Suspect]
     Indication: CORONARY ARTERY DISEASE
     Route: 048
     Dates: start: 20120320, end: 20121018
  2. AZD6140 [Suspect]
     Indication: CORONARY ARTERY DISEASE
     Route: 048
     Dates: start: 20121025, end: 20121115
  3. ASA [Concomitant]
     Route: 048
  4. BISOPROLOL [Concomitant]
     Indication: HYPERTENSION
     Route: 048
  5. MONOTAB SR [Concomitant]
     Indication: CORONARY ARTERY DISEASE
     Route: 048
  6. INSULIN [Concomitant]
     Indication: TYPE 2 DIABETES MELLITUS
     Route: 058
  7. PREDUCTAL MR [Concomitant]
     Indication: CORONARY ARTERY DISEASE
     Route: 048
  8. GLUCOPHAGE FORTE [Concomitant]
     Indication: TYPE 2 DIABETES MELLITUS
     Route: 048
  9. CADUET [Concomitant]
     Indication: HYPERTENSION
     Route: 048
  10. CADUET [Concomitant]
     Indication: HYPERLIPIDAEMIA
     Route: 048

REACTIONS (1)
  - Non-cardiac chest pain [Recovered/Resolved]
